FAERS Safety Report 24443833 (Version 2)
Quarter: 2024Q4

REPORT INFORMATION
  Report Type: Report from Study
  Country: US (occurrence: US)
  Receive Date: 20241016
  Receipt Date: 20241017
  Transmission Date: 20250115
  Serious: No
  Sender: ROCHE
  Company Number: US-ROCHE-2214261

PATIENT
  Age: 49 Year
  Sex: Male

DRUGS (1)
  1. RITUXAN [Suspect]
     Active Substance: RITUXIMAB
     Indication: Myopathy
     Dosage: DAY1 + DAY15 THEN EVERY 6 MONTHS?RECEIVED DOSE ON 26/OCT/2018, 18/SEP/2018, 07/SEP/2018, 24/AUG/2018
     Route: 065
     Dates: end: 20191109

REACTIONS (2)
  - Off label use [Unknown]
  - No adverse event [Unknown]
